FAERS Safety Report 13592496 (Version 1)
Quarter: 2017Q2

REPORT INFORMATION
  Report Type: Spontaneous
  Country: US (occurrence: US)
  Receive Date: 20170530
  Receipt Date: 20170530
  Transmission Date: 20170830
  Serious: No
  Sender: FDA-Public Use
  Company Number: US-B.I. PHARMACEUTICALS,INC./RIDGEFIELD-2017-BI-029040

PATIENT
  Sex: Male

DRUGS (2)
  1. TRADJENTA [Suspect]
     Active Substance: LINAGLIPTIN
     Route: 048
     Dates: start: 2016
  2. TRADJENTA [Suspect]
     Active Substance: LINAGLIPTIN
     Indication: TYPE 2 DIABETES MELLITUS
     Dosage: 1 TABLET DAILY;  FORM STRENGTH: 5 MG; FORMULATION: TABLET? ADMINISTRATION CORRECT? NO ?ACTION(S) TAK
     Route: 048
     Dates: start: 2016

REACTIONS (1)
  - Incorrect drug administration duration [Unknown]

NARRATIVE: CASE EVENT DATE: 2016
